FAERS Safety Report 17429106 (Version 2)
Quarter: 2020Q1

REPORT INFORMATION
  Report Type: Report from Study
  Country: US (occurrence: US)
  Receive Date: 20200218
  Receipt Date: 20200228
  Transmission Date: 20200409
  Serious: Yes (Other)
  Sender: FDA-Public Use
  Company Number: NVSC2020US038177

PATIENT
  Age: 57 Year
  Sex: Female
  Weight: 70.31 kg

DRUGS (2)
  1. MAYZENT [Suspect]
     Active Substance: SIPONIMOD
     Dosage: UNK
     Route: 065
     Dates: start: 20200114, end: 20200114
  2. MAYZENT [Suspect]
     Active Substance: SIPONIMOD
     Indication: MULTIPLE SCLEROSIS
     Dosage: 2 MG, QD
     Route: 048
     Dates: start: 20191231

REACTIONS (14)
  - Tooth infection [Unknown]
  - Neuropathy peripheral [Unknown]
  - Thirst [Unknown]
  - Amnesia [Unknown]
  - Burning sensation [Unknown]
  - Paraesthesia [Unknown]
  - Rash macular [Unknown]
  - Speech disorder [Unknown]
  - Swelling face [Unknown]
  - Multiple sclerosis [Unknown]
  - Pain in extremity [Unknown]
  - Neuralgia [Unknown]
  - Fall [Unknown]
  - Confusional state [Unknown]

NARRATIVE: CASE EVENT DATE: 20200201
